FAERS Safety Report 10064641 (Version 1)
Quarter: 2014Q2

REPORT INFORMATION
  Report Type: Spontaneous
  Country: US (occurrence: None)
  Receive Date: 20140407
  Receipt Date: 20140407
  Transmission Date: 20141212
  Serious: Yes (Other)
  Sender: FDA-Public Use
  Company Number: None

PATIENT
  Age: 46 Year
  Sex: Female
  Weight: 79.38 kg

DRUGS (1)
  1. COPAXONE [Suspect]
     Indication: MULTIPLE SCLEROSIS
     Dosage: 1 INJECTION ONCE DAILY GIVEN INTO/UNDER THE SKIN
     Dates: start: 20140301, end: 20140401

REACTIONS (5)
  - Injection site urticaria [None]
  - Injection site pruritus [None]
  - Injection site mass [None]
  - Injection site discolouration [None]
  - Injection site vesicles [None]
